FAERS Safety Report 8554659-8 (Version None)
Quarter: 2012Q3

REPORT INFORMATION
  Report Type: 
  Country: None (occurrence: None)
  Receive Date: 20120731
  Receipt Date: 20120723
  Transmission Date: 20120928
  Serious: Yes (Life-Threatening, Hospitalization, Disabling)
  Sender: FDA-Public Use
  Company Number: DE-JNJFOC-20120707134

PATIENT
  Age: 76 Year
  Sex: Female
  Weight: 68 kg

DRUGS (3)
  1. REMICADE [Suspect]
     Route: 042
     Dates: start: 20120508
  2. REMICADE [Suspect]
     Indication: COLITIS ULCERATIVE
     Dosage: 340 MG/INFUSION
     Route: 042
     Dates: start: 20100927
  3. METHOTREXATE [Concomitant]
     Indication: RHEUMATOID ARTHRITIS
     Route: 065

REACTIONS (3)
  - MENINGITIS VIRAL [None]
  - HERPES ZOSTER OPHTHALMIC [None]
  - HERPES ZOSTER [None]
